FAERS Safety Report 7791975-1 (Version None)
Quarter: 2011Q4

REPORT INFORMATION
  Report Type: 
  Country: None (occurrence: None)
  Receive Date: 20111003
  Receipt Date: 20110922
  Transmission Date: 20120403
  Serious: Yes (Other)
  Sender: FDA-Public Use
  Company Number: US-BAYER-2011-089864

PATIENT
  Age: 26 Year
  Sex: Female

DRUGS (1)
  1. MIRENA [Suspect]
     Indication: CONTRACEPTION
     Dosage: 20 MCG/24HR, CONT
     Route: 015
     Dates: start: 20080101

REACTIONS (13)
  - MUSCULAR WEAKNESS [None]
  - PALPITATIONS [None]
  - AMENORRHOEA [None]
  - VULVOVAGINAL SWELLING [None]
  - HEADACHE [None]
  - SMEAR CERVIX ABNORMAL [None]
  - MICTURITION URGENCY [None]
  - PROCEDURAL PAIN [None]
  - VAGINAL HAEMORRHAGE [None]
  - MEDICAL DEVICE DISCOMFORT [None]
  - PARAESTHESIA [None]
  - DYSPAREUNIA [None]
  - PELVIC PAIN [None]
